FAERS Safety Report 19279104 (Version 1)
Quarter: 2021Q2

REPORT INFORMATION
  Report Type: Spontaneous
  Country: US (occurrence: US)
  Receive Date: 20210520
  Receipt Date: 20210520
  Transmission Date: 20210717
  Serious: Yes (Other)
  Sender: FDA-Public Use
  Company Number: US-PFIZER INC-2021528082

PATIENT
  Age: 79 Year
  Sex: Female
  Weight: 97.52 kg

DRUGS (1)
  1. IBRANCE [Suspect]
     Active Substance: PALBOCICLIB
     Indication: BREAST CANCER METASTATIC
     Dosage: 125 MG, ONCE DAILY, 21 DAYS ON, 7 DAYS OFF

REACTIONS (2)
  - Pneumonia [Not Recovered/Not Resolved]
  - White blood cell count decreased [Unknown]
